FAERS Safety Report 7048688-3 (Version None)
Quarter: 2010Q4

REPORT INFORMATION
  Report Type: 
  Country: None (occurrence: None)
  Receive Date: 20101018
  Receipt Date: 20101006
  Transmission Date: 20110411
  Serious: Yes (Hospitalization)
  Sender: FDA-Public Use
  Company Number: US-BIOGENIDEC-2010BI032265

PATIENT
  Age: 35 Year
  Sex: Male
  Weight: 127 kg

DRUGS (6)
  1. TYSABRI [Suspect]
     Indication: MULTIPLE SCLEROSIS
     Route: 042
     Dates: start: 20080812
  2. COUMADIN [Concomitant]
     Indication: PULMONARY EMBOLISM
     Dates: start: 20040101
  3. METHADONE [Concomitant]
     Indication: MYALGIA
     Dates: start: 20000801
  4. NUCYNTA [Concomitant]
     Indication: MYALGIA
     Dates: start: 20000801
  5. LYRICA [Concomitant]
     Indication: MYALGIA
     Dates: start: 20000801
  6. CYMBALTA [Concomitant]
     Indication: MYALGIA
     Dates: start: 20000801

REACTIONS (9)
  - EXECUTIVE DYSFUNCTION [None]
  - FATIGUE [None]
  - GINGIVAL BLEEDING [None]
  - MYALGIA [None]
  - OPTIC NEURITIS [None]
  - PAIN [None]
  - PAIN IN EXTREMITY [None]
  - PULMONARY EMBOLISM [None]
  - TOOTH DISORDER [None]
